FAERS Safety Report 25253106 (Version 1)
Quarter: 2025Q2

REPORT INFORMATION
  Report Type: Spontaneous
  Country: FR (occurrence: FR)
  Receive Date: 20250430
  Receipt Date: 20250430
  Transmission Date: 20250716
  Serious: Yes (Hospitalization, Other)
  Sender: CIPLA
  Company Number: FR-AFSSAPS-PV2025000235

PATIENT

DRUGS (1)
  1. RIVAROXABAN [Suspect]
     Active Substance: RIVAROXABAN
     Indication: Dilated cardiomyopathy
     Dosage: 1.4 MILLIGRAM, TID (EVERY 8 HOURS)
     Route: 048
     Dates: start: 20250131, end: 20250217

REACTIONS (3)
  - Cardiac ventricular thrombosis [Recovering/Resolving]
  - Drug ineffective [Recovering/Resolving]
  - Product preparation error [Recovering/Resolving]

NARRATIVE: CASE EVENT DATE: 20250209
